FAERS Safety Report 25353766 (Version 1)
Quarter: 2025Q2

REPORT INFORMATION
  Report Type: Spontaneous
  Country: US (occurrence: US)
  Receive Date: 20250523
  Receipt Date: 20250523
  Transmission Date: 20250716
  Serious: Yes (Other)
  Sender: Kenvue
  Company Number: US-KENVUE-20250505001

PATIENT
  Sex: Female

DRUGS (1)
  1. TYLENOL [Suspect]
     Active Substance: ACETAMINOPHEN
     Indication: Product used for unknown indication
     Route: 065

REACTIONS (8)
  - Abdominal pain [Unknown]
  - Vomiting [Unknown]
  - Malaise [Unknown]
  - Throat irritation [Unknown]
  - Chest discomfort [Unknown]
  - Pain [Unknown]
  - Pallor [Unknown]
  - Feeling abnormal [Unknown]
